FAERS Safety Report 4437796-9 (Version None)
Quarter: 2004Q3

REPORT INFORMATION
  Report Type: 
  Country: None (occurrence: None)
  Receive Date: 20040728
  Receipt Date: 20040305
  Transmission Date: 20050211
  Serious: No
  Sender: FDA-Public Use
  Company Number: USA040361192

PATIENT
  Age: 9 Year
  Sex: Male
  Weight: 33 kg

DRUGS (3)
  1. STRATTERA [Suspect]
     Indication: ATTENTION DEFICIT/HYPERACTIVITY DISORDER
     Dosage: 40 MG/1 IN THE MORNING
     Dates: start: 20040101
  2. STRATTERA [Suspect]
     Indication: IMPULSIVE BEHAVIOUR
     Dosage: 40 MG/1 IN THE MORNING
     Dates: start: 20040101
  3. ZYRTEC [Concomitant]

REACTIONS (3)
  - ANGER [None]
  - DRUG INEFFECTIVE [None]
  - PNEUMONIA [None]
